FAERS Safety Report 8072797-3 (Version None)
Quarter: 2012Q1

REPORT INFORMATION
  Report Type: 
  Country: None (occurrence: None)
  Receive Date: 20120124
  Receipt Date: 20120124
  Transmission Date: 20120608
  Serious: No
  Sender: FDA-Public Use
  Company Number: None

PATIENT

DRUGS (2)
  1. LOVENOX [Suspect]
     Dosage: INJECTABLE SQ 80 MG VIAL
     Route: 058
  2. LOVENOX [Suspect]
     Dosage: INJECTABLE SQ 80 MG PREFILLED SYRINGE
     Route: 058

REACTIONS (1)
  - MEDICATION ERROR [None]
